FAERS Safety Report 7824594-9 (Version None)
Quarter: 2011Q4

REPORT INFORMATION
  Report Type: 
  Country: None (occurrence: None)
  Receive Date: 20111019
  Receipt Date: 20111006
  Transmission Date: 20120403
  Serious: Yes (Other)
  Sender: FDA-Public Use
  Company Number: US-ELI_LILLY_AND_COMPANY-US201110001904

PATIENT
  Age: 17 Year
  Sex: Female
  Weight: 75.1 kg

DRUGS (4)
  1. PROZAC [Suspect]
     Dosage: UNK
     Dates: start: 20081101
  2. LEVOTHYROXINE SODIUM [Concomitant]
  3. CALCITRIOL [Concomitant]
  4. CALCIUM CARBONATE [Concomitant]

REACTIONS (4)
  - HYPOTHYROIDISM [None]
  - HYPOPARATHYROIDISM [None]
  - HYPOCALCAEMIA [None]
  - DEPRESSION [None]
